FAERS Safety Report 5696505-6 (Version None)
Quarter: 2008Q2

REPORT INFORMATION
  Report Type: 
  Country: None (occurrence: None)
  Receive Date: 20080408
  Receipt Date: 20080403
  Transmission Date: 20081010
  Serious: Yes (Hospitalization)
  Sender: FDA-Public Use
  Company Number: FR-BRISTOL-MYERS SQUIBB COMPANY-13998372

PATIENT
  Age: 89 Year
  Sex: Female

DRUGS (8)
  1. IRBESARTAN [Suspect]
     Indication: HYPERTENSION
  2. FLUOXETINE [Suspect]
     Indication: DEPRESSION
  3. HEXAQUINE [Suspect]
     Indication: MUSCLE SPASMS
  4. EQUANIL [Suspect]
     Indication: ALCOHOLISM
  5. TIAPRIDAL [Suspect]
  6. SULFARLEM [Suspect]
     Indication: DRY MOUTH
  7. TETRAZEPAM [Suspect]
     Indication: FALL
     Dates: start: 20070507, end: 20070714
  8. DIALGIREX [Concomitant]
     Indication: FALL
     Dates: start: 20070507, end: 20070514

REACTIONS (1)
  - PITYRIASIS ROSEA [None]
